FAERS Safety Report 8434769-6 (Version None)
Quarter: 2012Q2

REPORT INFORMATION
  Report Type: 
  Country: None (occurrence: None)
  Receive Date: 20120614
  Receipt Date: 20120604
  Transmission Date: 20120825
  Serious: Yes (Other)
  Sender: FDA-Public Use
  Company Number: DE-JNJFOC-20120302670

PATIENT
  Age: 63 Year
  Sex: Female

DRUGS (2)
  1. REMICADE [Suspect]
     Indication: ANKYLOSING SPONDYLITIS
     Route: 042
     Dates: end: 20120216
  2. REMICADE [Suspect]
     Route: 042

REACTIONS (13)
  - BLOOD PRESSURE INCREASED [None]
  - JOINT SWELLING [None]
  - GINGIVAL SWELLING [None]
  - SENSORY DISTURBANCE [None]
  - CONSTIPATION [None]
  - VISUAL ACUITY REDUCED [None]
  - OEDEMA PERIPHERAL [None]
  - LIBIDO DECREASED [None]
  - TREMOR [None]
  - FURUNCLE [None]
  - FEELING COLD [None]
  - DYSPNOEA [None]
  - DRUG INEFFECTIVE [None]
